FAERS Safety Report 11030526 (Version 1)
Quarter: 2015Q2

REPORT INFORMATION
  Report Type: Spontaneous
  Country: FR (occurrence: FR)
  Receive Date: 20150415
  Receipt Date: 20150415
  Transmission Date: 20150821
  Serious: Yes (Other)
  Sender: FDA-Public Use
  Company Number: FR-PFIZER INC-2015126615

PATIENT
  Age: 38 Year
  Sex: Female
  Weight: 45 kg

DRUGS (1)
  1. EFFEXOR LP [Suspect]
     Active Substance: VENLAFAXINE HYDROCHLORIDE
     Dosage: 37.5 MG, 1X/DAY

REACTIONS (2)
  - Chronic kidney disease [Unknown]
  - Condition aggravated [Unknown]
